FAERS Safety Report 6599594-X (Version None)
Quarter: 2010Q1

REPORT INFORMATION
  Report Type: 
  Country: None (occurrence: None)
  Receive Date: 20100224
  Receipt Date: 20100212
  Transmission Date: 20100710
  Serious: Yes (Other)
  Sender: FDA-Public Use
  Company Number: DE-JNJFOC-20070804590

PATIENT
  Sex: Female
  Weight: 45 kg

DRUGS (22)
  1. DOXORUBICIN HCL [Suspect]
     Indication: BREAST CANCER
     Route: 042
  2. DOXORUBICIN HCL [Suspect]
     Route: 042
  3. OMEPRAZOL [Concomitant]
     Indication: ULCER
     Route: 065
  4. KEPPRA [Concomitant]
     Indication: EPILEPSY
     Route: 065
  5. METOCLOPRAMIDE HYDROCHLORIDE [Concomitant]
     Indication: ULCER
     Route: 048
  6. IMIGRAN [Concomitant]
     Indication: MIGRAINE
     Route: 065
  7. ANAFRANIL [Concomitant]
     Indication: PAIN
     Route: 065
  8. ZOFRAN [Concomitant]
     Indication: NAUSEA
     Route: 065
  9. ZOFRAN [Concomitant]
     Route: 065
  10. DEXAMETHASONE [Concomitant]
     Indication: HYPERSENSITIVITY
     Route: 065
  11. DEXAMETHASONE [Concomitant]
     Route: 065
  12. DEXAMETHASONE [Concomitant]
     Indication: NAUSEA
     Route: 065
  13. DEXAMETHASONE [Concomitant]
     Route: 065
  14. TRAMUNDIN [Concomitant]
     Indication: PAIN
     Route: 065
  15. TAVOR [Concomitant]
     Route: 065
  16. TAVOR [Concomitant]
     Route: 065
  17. NOVAMINSULFON [Concomitant]
     Indication: PAIN
     Route: 065
  18. DURAGESIC-100 [Concomitant]
     Indication: PAIN
     Route: 065
  19. DURAGESIC-100 [Concomitant]
     Route: 065
  20. DURAGESIC-100 [Concomitant]
     Route: 065
  21. MORPHINE [Concomitant]
     Indication: PAIN
     Route: 065
  22. CLEXANE [Concomitant]
     Indication: THROMBOSIS PROPHYLAXIS
     Route: 065

REACTIONS (2)
  - FATIGUE [None]
  - HEPATIC FAILURE [None]
